FAERS Safety Report 7405219-3 (Version None)
Quarter: 2011Q2

REPORT INFORMATION
  Report Type: 
  Country: None (occurrence: None)
  Receive Date: 20110411
  Receipt Date: 20110216
  Transmission Date: 20111010
  Serious: Yes (Other)
  Sender: FDA-Public Use
  Company Number: US-BAYER-201024050NA

PATIENT
  Age: 30 Year
  Sex: Female
  Weight: 81.633 kg

DRUGS (8)
  1. ACYCLOVIR [Concomitant]
     Dosage: UNK
     Dates: start: 20080401
  2. YAZ [Suspect]
     Indication: PREMENSTRUAL SYNDROME
     Dates: start: 20080101, end: 20090101
  3. NSAID'S [Concomitant]
     Dosage: UNK UNK, PRN
  4. ANTIBIOTICS [Concomitant]
     Dosage: UNK UNK, PRN
  5. SYNTHROID [Concomitant]
     Dosage: UNK
     Dates: start: 20080101
  6. FEMCON FE [Concomitant]
  7. YASMIN [Suspect]
     Indication: PREMENSTRUAL SYNDROME
     Dates: start: 20080101, end: 20090101
  8. METOPROLOL TARTRATE [Concomitant]
     Dosage: UNK
     Dates: start: 20080101

REACTIONS (2)
  - PAIN [None]
  - VENTRICULAR TACHYCARDIA [None]
